FAERS Safety Report 8085549-5 (Version None)
Quarter: 2012Q1

REPORT INFORMATION
  Report Type: 
  Country: None (occurrence: None)
  Receive Date: 20120128
  Receipt Date: 20110525
  Transmission Date: 20120608
  Serious: No
  Sender: FDA-Public Use
  Company Number: US-ABBOTT-11P-163-0713657-00

PATIENT
  Sex: Female
  Weight: 56.75 kg

DRUGS (10)
  1. HUMIRA [Suspect]
     Indication: PSORIASIS
     Route: 058
     Dates: start: 20110217
  2. BACTRIM [Suspect]
     Indication: NEPHROLITHIASIS
     Route: 048
     Dates: start: 20110201, end: 20110301
  3. BACTRIM [Suspect]
     Indication: ANTIBIOTIC PROPHYLAXIS
  4. ZYRTEC [Concomitant]
     Indication: SEASONAL ALLERGY
     Route: 048
  5. PERCOCET [Concomitant]
     Dosage: PRN
     Dates: start: 20110227
  6. LOVASA [Concomitant]
     Indication: BLOOD CHOLESTEROL INCREASED
     Route: 048
  7. VITAMIN D [Concomitant]
     Indication: VITAMIN SUPPLEMENTATION
     Dosage: 50,000 UNITS WEEKLY
     Route: 048
  8. PERCOCET [Concomitant]
     Dosage: PRN
     Dates: start: 20110301, end: 20110301
  9. PERCOCET [Suspect]
     Indication: FLANK PAIN
     Dosage: MAY TAKE THREE TIMES DAILY AS NEEDED
     Route: 048
     Dates: start: 20110301, end: 20110301
  10. PERCOCET [Suspect]
     Dosage: AS NEEDED
     Route: 048
     Dates: start: 20110301

REACTIONS (3)
  - NEPHROLITHIASIS [None]
  - FLANK PAIN [None]
  - NAUSEA [None]
